FAERS Safety Report 23132809 (Version 1)
Quarter: 2023Q4

REPORT INFORMATION
  Report Type: Spontaneous
  Country: US (occurrence: US)
  Receive Date: 20231101
  Receipt Date: 20231101
  Transmission Date: 20240110
  Serious: No
  Sender: FDA-Public Use
  Company Number: US-ELI_LILLY_AND_COMPANY-US202310014937

PATIENT
  Age: 51 Year
  Sex: Female

DRUGS (1)
  1. EMGALITY [Suspect]
     Active Substance: GALCANEZUMAB-GNLM
     Indication: Cluster headache
     Dosage: 240 MG, OTHER (LOADING DOSE)
     Route: 065
     Dates: start: 20231024

REACTIONS (2)
  - Accidental underdose [Unknown]
  - Injection site bruising [Unknown]

NARRATIVE: CASE EVENT DATE: 20231024
